FAERS Safety Report 18491397 (Version 3)
Quarter: 2021Q4

REPORT INFORMATION
  Report Type: Spontaneous
  Country: CA (occurrence: CA)
  Receive Date: 20201111
  Receipt Date: 20211207
  Transmission Date: 20220303
  Serious: Yes (Other)
  Sender: FDA-Public Use
  Company Number: CA-SAMSUNG BIOEPIS-SB-2020-33719

PATIENT
  Age: 38 Year
  Sex: Male
  Weight: 88 kg

DRUGS (2)
  1. INFLIXIMAB [Suspect]
     Active Substance: INFLIXIMAB
     Indication: Colitis ulcerative
     Route: 042
  2. MESALAMINE [Concomitant]
     Active Substance: MESALAMINE
     Indication: Product used for unknown indication
     Dosage: UNKNOWN. TABLET (DELAYED AND EXTENDED RELEASE)
     Route: 065

REACTIONS (11)
  - Polyp [Unknown]
  - Blood pressure diastolic increased [Unknown]
  - Blood pressure increased [Unknown]
  - Condition aggravated [Unknown]
  - Dehydration [Unknown]
  - Eating disorder symptom [Unknown]
  - Pain in extremity [Unknown]
  - Polycythaemia [Unknown]
  - Poor quality sleep [Unknown]
  - Intentional product use issue [Unknown]
  - Off label use [Unknown]
